FAERS Safety Report 16775451 (Version 3)
Quarter: 2019Q3

REPORT INFORMATION
  Report Type: Spontaneous
  Country: US (occurrence: US)
  Receive Date: 20190905
  Receipt Date: 20190917
  Transmission Date: 20191005
  Serious: Yes (Hospitalization)
  Sender: FDA-Public Use
  Company Number: US-PFIZER INC-2019372309

PATIENT
  Age: 16 Year
  Sex: Female

DRUGS (1)
  1. AMLODIPINE BESILATE [Suspect]
     Active Substance: AMLODIPINE BESYLATE
     Dosage: UNK

REACTIONS (3)
  - Overdose [Unknown]
  - Toxicity to various agents [Recovered/Resolved]
  - Hypotension [Recovered/Resolved]
